FAERS Safety Report 5754657-3 (Version None)
Quarter: 2008Q2

REPORT INFORMATION
  Report Type: 
  Country: None (occurrence: None)
  Receive Date: 20080530
  Receipt Date: 20080520
  Transmission Date: 20081010
  Serious: Yes (Other)
  Sender: FDA-Public Use
  Company Number: GB-PFIZER INC-2008043723

PATIENT
  Age: 32 Year
  Sex: Female
  Weight: 70 kg

DRUGS (1)
  1. CHANTIX [Suspect]
     Indication: SMOKING CESSATION THERAPY
     Route: 048
     Dates: start: 20080116, end: 20080215

REACTIONS (1)
  - INTENTIONAL SELF-INJURY [None]
